FAERS Safety Report 6235959-3 (Version None)
Quarter: 2009Q2

REPORT INFORMATION
  Report Type: 
  Country: None (occurrence: None)
  Receive Date: 20090619
  Receipt Date: 20090616
  Transmission Date: 20091009
  Serious: Yes (Death, Hospitalization, Other)
  Sender: FDA-Public Use
  Company Number: PHHY2009BR09288

PATIENT
  Sex: Female

DRUGS (2)
  1. EXFORGE [Suspect]
     Indication: HYPERTENSION
     Dosage: 1 DF, BID
     Route: 048
  2. CALCIO [Concomitant]

REACTIONS (6)
  - CEREBROVASCULAR ACCIDENT [None]
  - FEMUR FRACTURE [None]
  - HYPERTENSION [None]
  - MALAISE [None]
  - OSTEOPOROSIS [None]
  - SURGERY [None]
